FAERS Safety Report 19007853 (Version 3)
Quarter: 2021Q4

REPORT INFORMATION
  Report Type: Spontaneous
  Country: DE (occurrence: DE)
  Receive Date: 20210315
  Receipt Date: 20211014
  Transmission Date: 20220304
  Serious: Yes (Other)
  Sender: FDA-Public Use
  Company Number: DE-ELI_LILLY_AND_COMPANY-DE202103001758

PATIENT
  Age: 61 Year
  Sex: Male

DRUGS (9)
  1. TRULICITY [Suspect]
     Active Substance: DULAGLUTIDE
     Indication: Type 2 diabetes mellitus
     Dosage: 1.5 MG, UNKNOWN
     Route: 058
     Dates: start: 20200915, end: 202012
  2. REPAGLINIDE [Concomitant]
     Active Substance: REPAGLINIDE
     Dosage: 1 MG, BID
  3. REPAGLINIDE [Concomitant]
     Active Substance: REPAGLINIDE
     Dosage: 2 MG, EACH EVENING
  4. BISOPROLOL FUMARATE [Concomitant]
     Active Substance: BISOPROLOL FUMARATE
     Dosage: 0.5 DOSAGE FORM, BID
  5. ALLOPURINOL [Concomitant]
     Active Substance: ALLOPURINOL
     Dosage: 1 DOSAGE FORM, EACH MORNING
  6. MOXONIDINE [Concomitant]
     Active Substance: MOXONIDINE
     Dosage: 1 DOSAGE FORM, BID
  7. RAMIPRIL [Concomitant]
     Active Substance: RAMIPRIL
     Dosage: 1 DOSAGE FORM, BID
  8. INDAPAMIDE [Concomitant]
     Active Substance: INDAPAMIDE
     Dosage: 1 DOSAGE FORM, EACH MORNING
  9. CHOLECALCIFEROL [Concomitant]
     Active Substance: CHOLECALCIFEROL
     Dosage: 20.000 DOSAGE FORM, WEEKLY (1/W)

REACTIONS (11)
  - Intestinal obstruction [Unknown]
  - Cardiovascular disorder [Recovered/Resolved]
  - Lipase increased [Unknown]
  - Amylase increased [Unknown]
  - Feeling cold [Recovered/Resolved]
  - C-reactive protein increased [Unknown]
  - Leukocytosis [Unknown]
  - Vomiting [Recovered/Resolved]
  - Diarrhoea [Recovered/Resolved]
  - Nausea [Recovered/Resolved]
  - Abdominal pain [Recovered/Resolved]

NARRATIVE: CASE EVENT DATE: 20200101
